FAERS Safety Report 17453551 (Version 1)
Quarter: 2020Q1

REPORT INFORMATION
  Report Type: Spontaneous
  Country: CZ (occurrence: CZ)
  Receive Date: 20200224
  Receipt Date: 20200224
  Transmission Date: 20200409
  Serious: Yes (Death, Hospitalization, Other)
  Sender: FDA-Public Use
  Company Number: CZ-INDIVIOR EUROPE LIMITED-INDV-123671-2020

PATIENT
  Sex: Male

DRUGS (16)
  1. BUPRENORPHINE TRANSDERMAL SYSTEM [Suspect]
     Active Substance: BUPRENORPHINE
     Dosage: 52.5 MICROGRAM, QH
     Route: 065
  2. ALCOHOL. [Suspect]
     Active Substance: ALCOHOL
     Indication: PRODUCT USED FOR UNKNOWN INDICATION
     Dosage: UNK
     Route: 065
  3. SUBUTEX [Suspect]
     Active Substance: BUPRENORPHINE HYDROCHLORIDE
     Dosage: UNK
     Route: 042
  4. METHADONE [Suspect]
     Active Substance: METHADONE HYDROCHLORIDE
     Indication: DRUG DEPENDENCE
     Dosage: UNK
     Route: 065
     Dates: start: 2008
  5. SUBUTEX [Suspect]
     Active Substance: BUPRENORPHINE HYDROCHLORIDE
     Indication: DRUG WITHDRAWAL SYNDROME
     Dosage: 32 MG TOTAL (UP TO FOUR TIMES A DAY)
     Route: 065
  6. SUBOXONE [Suspect]
     Active Substance: BUPRENORPHINE HYDROCHLORIDE\NALOXONE HYDROCHLORIDE
     Indication: DRUG DEPENDENCE
     Dosage: UNK, BID
     Route: 065
     Dates: start: 2016
  7. BUPRENORPHINE TRANSDERMAL SYSTEM [Suspect]
     Active Substance: BUPRENORPHINE
     Indication: PAIN
     Dosage: 35 MICROGRAM, QH
     Route: 065
  8. BUPRENORPHINE TRANSDERMAL SYSTEM [Suspect]
     Active Substance: BUPRENORPHINE
     Dosage: UNK
     Route: 065
     Dates: start: 2014, end: 2017
  9. RIVOTRIL [Suspect]
     Active Substance: CLONAZEPAM
     Dosage: 4 MILLIGRAM, QD (REDUCED THE DOSE FROM 16 MG ON HIS OWN)
     Route: 065
     Dates: start: 2006, end: 201401
  10. ROHYPNOL [Suspect]
     Active Substance: FLUNITRAZEPAM
     Indication: DRUG DEPENDENCE
     Dosage: UNK
     Route: 065
  11. SUBUTEX [Suspect]
     Active Substance: BUPRENORPHINE HYDROCHLORIDE
     Indication: PAIN
     Dosage: UNK
     Route: 065
  12. SUBUTEX [Suspect]
     Active Substance: BUPRENORPHINE HYDROCHLORIDE
     Indication: DRUG DEPENDENCE
     Dosage: 16 MILLIGRAM, UNKNOWN
     Route: 065
     Dates: start: 2006
  13. BUPRENORPHINE TRANSDERMAL SYSTEM [Suspect]
     Active Substance: BUPRENORPHINE
     Dosage: 70 MICROGRAM, QH
     Route: 065
     Dates: start: 201307
  14. DIAZEPAM. [Suspect]
     Active Substance: DIAZEPAM
     Indication: PRODUCT USED FOR UNKNOWN INDICATION
     Dosage: UNK
     Route: 065
  15. BUPRENORPHINE TRANSDERMAL SYSTEM [Suspect]
     Active Substance: BUPRENORPHINE
     Dosage: 122.5 MICROGRAM, QH
     Route: 065
     Dates: start: 201609
  16. RIVOTRIL [Suspect]
     Active Substance: CLONAZEPAM
     Indication: PRODUCT USED FOR UNKNOWN INDICATION
     Dosage: 2 MILLIGRAM, QD (IN THE MORNING)
     Route: 065
     Dates: start: 2006

REACTIONS (17)
  - Pneumonia [Unknown]
  - Abscess [Unknown]
  - Substance abuse [Unknown]
  - Arthritis infective [Unknown]
  - Arthralgia [Unknown]
  - Drug withdrawal syndrome [Unknown]
  - Death [Fatal]
  - Tooth injury [Unknown]
  - Gastrointestinal haemorrhage [Unknown]
  - Sleep disorder [Unknown]
  - Intentional product use issue [Unknown]
  - Drug abuse [Recovered/Resolved]
  - Lymphadenopathy [Unknown]
  - Fistula [Unknown]
  - Inappropriate schedule of product administration [Unknown]
  - Inflammation [Unknown]
  - Osteonecrosis [Unknown]

NARRATIVE: CASE EVENT DATE: 2003
